FAERS Safety Report 4353811-5 (Version None)
Quarter: 2004Q2

REPORT INFORMATION
  Report Type: 
  Country: None (occurrence: None)
  Receive Date: 20040430
  Receipt Date: 20040419
  Transmission Date: 20050107
  Serious: Yes (Other)
  Sender: FDA-Public Use
  Company Number: GB-JNJFOC-20031100012

PATIENT
  Sex: Male
  Weight: 79 kg

DRUGS (11)
  1. RISPERDAL [Suspect]
     Indication: DRUG USE FOR UNKNOWN INDICATION
     Dosage: 6 MG, 1 IN 1 DAY, ORAL; 4 MG, 1 IN 1 DAY, ORAL; 5 MG, 1 IN 1 DAY, ORAL
     Route: 048
     Dates: start: 20030304, end: 20031001
  2. RISPERDAL [Suspect]
     Indication: DRUG USE FOR UNKNOWN INDICATION
     Dosage: 6 MG, 1 IN 1 DAY, ORAL; 4 MG, 1 IN 1 DAY, ORAL; 5 MG, 1 IN 1 DAY, ORAL
     Route: 048
     Dates: start: 20031001
  3. CYCLOSPORINE [Concomitant]
  4. PENICILLIN [Concomitant]
  5. BACTRIM [Concomitant]
  6. PREDNISOLONE [Concomitant]
  7. FLUCONAZOLE [Concomitant]
  8. ALPHAGAN (BRIMONIDINE TARTRATE) DOUCHE [Concomitant]
  9. TRUSOPT (DORZOLAMIDE HYDROCHLORIDE) DROPS [Concomitant]
  10. SERETIDE ACCUHALER (SERETIDE) [Concomitant]
  11. SALAMOL (SALBUTAMOL SULFATE) INHALATION [Concomitant]

REACTIONS (5)
  - ANAPHYLACTIC REACTION [None]
  - EXCITABILITY [None]
  - GAIT DISTURBANCE [None]
  - INCONTINENCE [None]
  - OPEN ANGLE GLAUCOMA [None]
